FAERS Safety Report 16781871 (Version 1)
Quarter: 2019Q4

REPORT INFORMATION
  Report Type: Spontaneous
  Country: US (occurrence: US)
  Receive Date: 20190906
  Receipt Date: 20190906
  Transmission Date: 20200122
  Serious: Yes (Death)
  Sender: FDA-Public Use
  Company Number: None

PATIENT
  Age: 75 Year
  Sex: Male

DRUGS (10)
  1. DULOXETINE. [Concomitant]
     Active Substance: DULOXETINE
  2. LISINOPRIL. [Concomitant]
     Active Substance: LISINOPRIL
  3. MULTIVITAMIN [Concomitant]
     Active Substance: VITAMINS
  4. VITAMIN B [Concomitant]
     Active Substance: VITAMIN B
  5. NOVOLOG [Concomitant]
     Active Substance: INSULIN ASPART
  6. IRON [Concomitant]
     Active Substance: IRON
  7. TYLENOL [Concomitant]
     Active Substance: ACETAMINOPHEN
  8. RETACRIT [Suspect]
     Active Substance: EPOETIN ALFA-EPBX
     Indication: BLADDER CANCER
     Dosage: ?          OTHER FREQUENCY:ONCE PER MONTH;?
     Route: 058
  9. RETACRIT [Suspect]
     Active Substance: EPOETIN ALFA-EPBX
     Indication: PROSTATE CANCER
     Dosage: ?          OTHER FREQUENCY:ONCE PER MONTH;?
     Route: 058
  10. LEVEMIR [Concomitant]
     Active Substance: INSULIN DETEMIR

REACTIONS (1)
  - Death [None]

NARRATIVE: CASE EVENT DATE: 20190628
